FAERS Safety Report 9323000 (Version 1)
Quarter: 2013Q2

REPORT INFORMATION
  Report Type: Report from Study
  Country: AR (occurrence: AR)
  Receive Date: 20130603
  Receipt Date: 20130603
  Transmission Date: 20140414
  Serious: Yes (Other)
  Sender: FDA-Public Use
  Company Number: AR-ROCHE-1230473

PATIENT
  Sex: Male

DRUGS (2)
  1. LUCENTIS [Suspect]
     Indication: LACRIMATION INCREASED
     Dosage: 1 AMPOULE A MONTH
     Route: 050
     Dates: start: 2010
  2. TIMOLOL MALEATE [Concomitant]

REACTIONS (6)
  - Fall [Unknown]
  - Ear neoplasm malignant [Recovered/Resolved]
  - Neoplasm prostate [Not Recovered/Not Resolved]
  - Arthropathy [Recovered/Resolved]
  - Sciatica [Not Recovered/Not Resolved]
  - Back pain [Not Recovered/Not Resolved]
